FAERS Safety Report 7579930-8 (Version None)
Quarter: 2011Q2

REPORT INFORMATION
  Report Type: 
  Country: None (occurrence: None)
  Receive Date: 20110527
  Receipt Date: 20100816
  Transmission Date: 20111010
  Serious: Yes (Life-Threatening, Hospitalization)
  Sender: FDA-Public Use
  Company Number: 2010SCPR001999

PATIENT
  Age: 56 Year
  Sex: Male

DRUGS (4)
  1. ASCORBIC ACID [Concomitant]
  2. CAPTOPRIL [Suspect]
     Indication: PRODUCT USED FOR UNKNOWN INDICATION
  3. ASPIRIN [Concomitant]
  4. DICLOFENAC SODIUM [Concomitant]

REACTIONS (1)
  - ANGIOEDEMA [None]
